FAERS Safety Report 6524820-2 (Version None)
Quarter: 2009Q4

REPORT INFORMATION
  Report Type: 
  Country: None (occurrence: None)
  Receive Date: 20091224
  Receipt Date: 20091201
  Transmission Date: 20100525
  Serious: Yes (Hospitalization)
  Sender: FDA-Public Use
  Company Number: AE-2009-317

PATIENT
  Age: 79 Year
  Sex: Male

DRUGS (8)
  1. FUROSEMIDE [Suspect]
     Indication: RENAL IMPAIRMENT
     Dosage: 40MG,QD.ORAL
     Route: 048
  2. CAPTOPRIL [Suspect]
     Indication: HYPERTENSION
     Dosage: 25MG, QD, ORAL
  3. VERAPAMIL HCL [Suspect]
     Indication: HYPERTENSION
     Dosage: 240MG, QD, ORAL
     Route: 048
  4. RAMIPRIL [Suspect]
     Indication: RENAL IMPAIRMENT
     Dosage: 2.5MG, QD, ORAL
     Route: 048
  5. THEOPHYLLINE [Suspect]
     Indication: CHRONIC OBSTRUCTIVE PULMONARY DISEASE
     Dosage: 400MG, BID, ORAL
     Route: 048
     Dates: end: 20090119
  6. XIPAMIDE [Suspect]
     Indication: HYPERTENSION
     Dosage: 20MG, QD, ORAL
     Route: 048
  7. DOMPERIDONE [Concomitant]
  8. PANTOPRAZOLE [Concomitant]

REACTIONS (5)
  - ASTHENIA [None]
  - HYPOTENSION [None]
  - NAUSEA [None]
  - OVERDOSE [None]
  - SINUS TACHYCARDIA [None]
